FAERS Safety Report 11273375 (Version 1)
Quarter: 2015Q3

REPORT INFORMATION
  Report Type: Spontaneous
  Country: US (occurrence: US)
  Receive Date: 20150715
  Receipt Date: 20150715
  Transmission Date: 20151125
  Serious: No
  Sender: FDA-Public Use
  Company Number: US-BAUSCH-BL-2014-006886

PATIENT
  Age: 64 Year
  Sex: Female
  Weight: 131.66 kg

DRUGS (2)
  1. BESIVANCE [Suspect]
     Active Substance: BESIFLOXACIN
     Indication: CATARACT
     Route: 047
     Dates: start: 20140909, end: 2014
  2. PROLENSA [Suspect]
     Active Substance: BROMFENAC SODIUM
     Indication: CATARACT
     Route: 047
     Dates: start: 20140909, end: 2014

REACTIONS (2)
  - Blister [Recovered/Resolved]
  - Off label use [None]

NARRATIVE: CASE EVENT DATE: 201409
